FAERS Safety Report 9703785 (Version 1)
Quarter: 2013Q4

REPORT INFORMATION
  Report Type: Spontaneous
  Country: US (occurrence: US)
  Receive Date: 20131122
  Receipt Date: 20131122
  Transmission Date: 20140711
  Serious: Yes (Death, Life-Threatening, Hospitalization)
  Sender: FDA-Public Use
  Company Number: US-ELI_LILLY_AND_COMPANY-US201311005413

PATIENT
  Age: 55 Year
  Sex: Male

DRUGS (2)
  1. EFFIENT [Suspect]
     Indication: STENT PLACEMENT
     Dosage: 60 MG, SINGLE
     Route: 065
     Dates: start: 2010
  2. EFFIENT [Suspect]
     Dosage: 10 MG, UNK
     Route: 065
     Dates: start: 2010

REACTIONS (3)
  - Pneumonia [Fatal]
  - Endotracheal intubation complication [Fatal]
  - Hypersensitivity [Not Recovered/Not Resolved]
